FAERS Safety Report 18959045 (Version 1)
Quarter: 2021Q1

REPORT INFORMATION
  Report Type: Spontaneous
  Country: FR (occurrence: FR)
  Receive Date: 20210302
  Receipt Date: 20210302
  Transmission Date: 20210420
  Serious: Yes (Hospitalization)
  Sender: FDA-Public Use
  Company Number: FR-TEVA-2021-FR-1885138

PATIENT
  Age: 76 Year
  Sex: Female
  Weight: 78 kg

DRUGS (9)
  1. VERAPAMIL (CHLORHYDRATE DE) [Suspect]
     Active Substance: VERAPAMIL HYDROCHLORIDE
     Dosage: 240 MG
     Route: 048
     Dates: start: 20200411, end: 20200525
  2. FUROSEMIDE. [Suspect]
     Active Substance: FUROSEMIDE
     Dosage: 40 MG
     Route: 048
     Dates: start: 20200412, end: 20200525
  3. HEPARINE CALCIQUE [Suspect]
     Active Substance: HEPARIN CALCIUM
     Dosage: 5000 IU
     Route: 058
     Dates: start: 20200411, end: 20200525
  4. PLAQUENIL [Suspect]
     Active Substance: HYDROXYCHLOROQUINE SULFATE
     Dosage: 400 MG
     Route: 048
     Dates: start: 20200412, end: 20200422
  5. PREGABALINE [Suspect]
     Active Substance: PREGABALIN
     Dosage: 150 MG
     Route: 048
     Dates: start: 20200411, end: 20200525
  6. AZITHROMYCINE [Suspect]
     Active Substance: AZITHROMYCIN
     Indication: COVID-19 PNEUMONIA
     Dosage: 250 MG
     Route: 048
     Dates: start: 20200412, end: 20200416
  7. CLOMIPRAMINE (CHLORHYDRATE DE) [Suspect]
     Active Substance: CLOMIPRAMINE HYDROCHLORIDE
     Route: 048
     Dates: start: 20200411, end: 20200524
  8. LANSOPRAZOLE. [Suspect]
     Active Substance: LANSOPRAZOLE
     Route: 048
     Dates: start: 20200411, end: 20200524
  9. PERINDOPRIL [Suspect]
     Active Substance: PERINDOPRIL
     Dosage: 2 MG
     Route: 048
     Dates: start: 20200412, end: 20200525

REACTIONS (1)
  - Drug reaction with eosinophilia and systemic symptoms [Unknown]

NARRATIVE: CASE EVENT DATE: 20200506
